FAERS Safety Report 12109330 (Version 1)
Quarter: 2016Q1

REPORT INFORMATION
  Report Type: Spontaneous
  Country: None (occurrence: None)
  Receive Date: 20160222
  Receipt Date: 20160222
  Transmission Date: 20160526
  Serious: Yes (Disabling)
  Sender: FDA-Public Use
  Company Number: None

PATIENT
  Age: 21 Year
  Sex: Male
  Weight: 70 kg

DRUGS (1)
  1. CEFIXIME. [Suspect]
     Active Substance: CEFIXIME
     Dosage: ONCE DAILY, TAKEN BY MOUTH
     Route: 048

REACTIONS (1)
  - Abdominal pain upper [None]

NARRATIVE: CASE EVENT DATE: 20160218
